FAERS Safety Report 19912509 (Version 1)
Quarter: 2021Q4

REPORT INFORMATION
  Report Type: Spontaneous
  Country: US (occurrence: US)
  Receive Date: 20211004
  Receipt Date: 20211004
  Transmission Date: 20220303
  Serious: Yes (Hospitalization)
  Sender: FDA-Public Use
  Company Number: US-VERTEX PHARMACEUTICALS-2021-015277

PATIENT
  Age: 24 Year
  Sex: Female

DRUGS (1)
  1. TRIKAFTA [Suspect]
     Active Substance: ELEXACAFTOR\IVACAFTOR\TEZACAFTOR
     Indication: Cystic fibrosis
     Dosage: FULL DOSE
     Route: 048
     Dates: start: 20191205

REACTIONS (5)
  - Pneumonia [Recovering/Resolving]
  - Suspected COVID-19 [Unknown]
  - Fatigue [Unknown]
  - Dyspnoea [Unknown]
  - Bacterial test positive [Unknown]

NARRATIVE: CASE EVENT DATE: 20210901
